FAERS Safety Report 21408333 (Version 2)
Quarter: 2022Q4

REPORT INFORMATION
  Report Type: Spontaneous
  Country: KR (occurrence: KR)
  Receive Date: 20221004
  Receipt Date: 20221020
  Transmission Date: 20230112
  Serious: No
  Sender: FDA-Public Use
  Company Number: KR-009507513-2210KOR000080

PATIENT
  Age: 56 Year
  Sex: Female
  Weight: 46 kg

DRUGS (5)
  1. PREVYMIS [Suspect]
     Active Substance: LETERMOVIR
     Indication: Antiviral prophylaxis
     Dosage: STRENGTH: 240MG/12ML, FREQUENCY: ONCE DAILY
     Route: 042
     Dates: start: 20201022, end: 20201029
  2. ZOYLEX [ACICLOVIR] [Concomitant]
     Indication: Infection prophylaxis
     Dosage: 400 MILLIGRAM, QD
     Route: 048
     Dates: start: 20200529
  3. SULFAMETHOXAZOLE\TRIMETHOPRIM [Concomitant]
     Active Substance: SULFAMETHOXAZOLE\TRIMETHOPRIM
     Indication: Infection prophylaxis
     Dosage: 400/80 MILLIGRAM, BID
     Route: 048
     Dates: start: 20200529, end: 20210705
  4. LEVOFLOXACIN [Concomitant]
     Active Substance: LEVOFLOXACIN
     Indication: Infection prophylaxis
     Dosage: 500 MILLIGRAM, QD
     Route: 048
     Dates: start: 20200629, end: 20210705
  5. CIPOL [CICLOSPORIN] [Concomitant]
     Indication: Acute myeloid leukaemia
     Dosage: 75 MILLIGRAM, BID
     Route: 042
     Dates: start: 20201013, end: 20201109

REACTIONS (1)
  - Drug ineffective [Unknown]

NARRATIVE: CASE EVENT DATE: 20201114
